FAERS Safety Report 5801289 (Version 13)
Quarter: 2013Q4

REPORT INFORMATION
  Report Type: Spontaneous
  Country: US (occurrence: US)
  Receive Date: 20050523
  Receipt Date: 20131220
  Transmission Date: 20140711
  Serious: Yes (Death, Hospitalization, Other)
  Sender: FDA-Public Use
  Company Number: PHEH2005US02736

PATIENT
  Age: 72 Year
  Sex: Male

DRUGS (20)
  1. ZOMETA [Suspect]
     Indication: PROSTATE CANCER METASTATIC
     Dosage: 4 MG, Q 4 WEEKS
     Route: 041
     Dates: start: 20030123, end: 20050216
  2. ZOMETA [Suspect]
     Indication: BONE DISORDER
     Route: 042
     Dates: end: 20051205
  3. ZOMETA [Suspect]
     Dosage: 3.5 MG, QMO
     Route: 042
     Dates: start: 2007
  4. TAXOL [Concomitant]
     Dates: start: 200301
  5. ZOLADEX [Concomitant]
  6. CASODEX [Concomitant]
  7. PRINIVIL [Concomitant]
  8. ZOCOR ^MERCK^ [Concomitant]
  9. SELENIUM [Concomitant]
  10. MULTIVITAMINS [Concomitant]
  11. CALCIUM [Concomitant]
  12. COUMADIN [Concomitant]
  13. EMCYT [Concomitant]
  14. PROPRANOLOL [Concomitant]
  15. ACETYLSALICYLIC ACID [Concomitant]
     Dosage: 81 MG, QD
  16. LASIX [Concomitant]
  17. NAPROSYN [Concomitant]
  18. COMPAZINE [Concomitant]
  19. PROCRIT [Concomitant]
     Indication: ANAEMIA
  20. LUPRON [Concomitant]

REACTIONS (49)
  - Death [Fatal]
  - Osteonecrosis of jaw [Not Recovered/Not Resolved]
  - Pain in jaw [Not Recovered/Not Resolved]
  - Bone disorder [Not Recovered/Not Resolved]
  - Impaired healing [Not Recovered/Not Resolved]
  - Abdominal pain upper [Recovering/Resolving]
  - Nausea [Unknown]
  - Vomiting [Unknown]
  - Rib fracture [Unknown]
  - Pleural effusion [Unknown]
  - Spinal compression fracture [Unknown]
  - Dyspnoea [Unknown]
  - Osteoarthritis [Unknown]
  - Pain in extremity [Unknown]
  - Asthma [Unknown]
  - Hypoxia [Unknown]
  - Neuropathy peripheral [Unknown]
  - Iron deficiency anaemia [Unknown]
  - Deep vein thrombosis [Unknown]
  - Hepatic cancer [Unknown]
  - Bursitis infective [Unknown]
  - Pneumonia [Unknown]
  - Lung disorder [Unknown]
  - Onychomycosis [Unknown]
  - Left ventricular dysfunction [Unknown]
  - Mitral valve disease [Unknown]
  - Tricuspid valve disease [Unknown]
  - Neutropenia [Unknown]
  - Ascites [Unknown]
  - Atelectasis [Unknown]
  - Intervertebral disc degeneration [Unknown]
  - Toothache [Unknown]
  - Oral discomfort [Unknown]
  - Oral infection [Unknown]
  - Kyphosis [Unknown]
  - Bone fragmentation [Unknown]
  - Metastases to bone [Unknown]
  - Malignant neoplasm progression [Unknown]
  - Pleural fibrosis [Unknown]
  - Hepatic mass [Unknown]
  - Haematoma [Unknown]
  - Cellulitis [Unknown]
  - Staphylococcal infection [Unknown]
  - Bundle branch block right [Unknown]
  - Ecchymosis [Unknown]
  - Pneumothorax [Unknown]
  - Tachycardia [Unknown]
  - Local swelling [Unknown]
  - Cataract [Unknown]
